FAERS Safety Report 6204689-6 (Version None)
Quarter: 2009Q2

REPORT INFORMATION
  Report Type: 
  Country: None (occurrence: None)
  Receive Date: 20090527
  Receipt Date: 20090518
  Transmission Date: 20091009
  Serious: Yes (Disabling)
  Sender: FDA-Public Use
  Company Number: PHRM2008FR01157

PATIENT
  Sex: Female

DRUGS (7)
  1. ZOMETA [Suspect]
     Indication: METASTASES TO BONE
     Dosage: 4 MG, QMO
     Route: 042
     Dates: start: 20061110, end: 20071116
  2. TAXOTERE [Concomitant]
  3. ACUITEL [Concomitant]
  4. DURAGESIC-100 [Concomitant]
  5. ESOMEPRAZOLE MAGNESIUM [Concomitant]
  6. LEVOTHYROX [Concomitant]
  7. AERIUS [Concomitant]

REACTIONS (4)
  - OSTEONECROSIS [None]
  - SURGERY [None]
  - TOOTH DISORDER [None]
  - TOOTH EXTRACTION [None]
